FAERS Safety Report 9788668 (Version 2)
Quarter: 2014Q1

REPORT INFORMATION
  Report Type: Spontaneous
  Country: FR (occurrence: FR)
  Receive Date: 20131230
  Receipt Date: 20140204
  Transmission Date: 20141002
  Serious: Yes (Life-Threatening, Hospitalization)
  Sender: FDA-Public Use
  Company Number: FR-JNJFOC-20131212903

PATIENT
  Age: 42 Year
  Sex: Male
  Weight: 111 kg

DRUGS (3)
  1. XEPLION [Suspect]
     Indication: SCHIZOPHRENIA
     Route: 030
     Dates: start: 20130312, end: 20131112
  2. XEPLION [Suspect]
     Indication: SCHIZOPHRENIA
     Route: 030
     Dates: start: 201208
  3. LYSANXIA [Concomitant]
     Indication: ANXIETY
     Route: 048
     Dates: start: 20130129

REACTIONS (2)
  - Diabetic hyperosmolar coma [Recovered/Resolved with Sequelae]
  - Weight increased [Unknown]
